FAERS Safety Report 24538772 (Version 1)
Quarter: 2024Q4

REPORT INFORMATION
  Report Type: Spontaneous
  Country: US (occurrence: US)
  Receive Date: 20241023
  Receipt Date: 20241023
  Transmission Date: 20250115
  Serious: No
  Sender: EPIC PHARM
  Company Number: US-EPICPHARMA-US-2024EPCSPO01279

PATIENT

DRUGS (1)
  1. DEXTROAMPHETAMINE SACCHARATE, AMPHETAMINE ASPARTATE, DEXTROAMPHETAMINE [Suspect]
     Active Substance: AMPHETAMINE ASPARTATE\AMPHETAMINE SULFATE\DEXTROAMPHETAMINE SACCHARATE\DEXTROAMPHETAMINE SULFATE
     Indication: Product used for unknown indication
     Route: 065

REACTIONS (7)
  - Migraine [Unknown]
  - Panic attack [Unknown]
  - Anxiety [Unknown]
  - Asthenia [Unknown]
  - Nausea [Unknown]
  - Drug ineffective [Unknown]
  - Product substitution issue [Unknown]
